FAERS Safety Report 4616721-1 (Version None)
Quarter: 2005Q1

REPORT INFORMATION
  Report Type: 
  Country: None (occurrence: None)
  Receive Date: 20050321
  Receipt Date: 20050307
  Transmission Date: 20050727
  Serious: Yes (Death)
  Sender: FDA-Public Use
  Company Number: 200501303

PATIENT
  Age: 17 Year
  Sex: Male
  Weight: 21.1 kg

DRUGS (11)
  1. BOTOX PURIFIED NEUROTOXIN COMPLEX [Suspect]
     Indication: TORTICOLLIS
     Dosage: 85 UNITS ONCE IM
     Route: 030
     Dates: start: 20050131, end: 20050131
  2. PHENOBAL [Concomitant]
  3. TEGRETOL [Concomitant]
  4. BACLOFEN [Concomitant]
  5. MYONAL [Concomitant]
  6. DANTRIUM [Concomitant]
  7. MUCODYNE [Concomitant]
  8. THEO-DUR [Concomitant]
  9. GASTER [Concomitant]
  10. HORIZON [Concomitant]
  11. LAXOBERON [Concomitant]

REACTIONS (4)
  - CARDIO-RESPIRATORY ARREST [None]
  - CONDITION AGGRAVATED [None]
  - RESPIRATORY DISORDER [None]
  - SUDDEN DEATH [None]
